FAERS Safety Report 10488671 (Version 1)
Quarter: 2014Q3

REPORT INFORMATION
  Report Type: Spontaneous
  Country: US (occurrence: None)
  Receive Date: 20140815
  Receipt Date: 20140815
  Transmission Date: 20150326
  Serious: Yes (Hospitalization, Other)
  Sender: FDA-Public Use
  Company Number: ADR-2014-00357

PATIENT
  Age: 25 Year
  Sex: Male

DRUGS (1)
  1. BACLOFEN INTRATHECAL (2000 MCG/ML) [Suspect]
     Active Substance: BACLOFEN
     Indication: MUSCLE SPASTICITY

REACTIONS (4)
  - Overdose [None]
  - Incorrect dose administered [None]
  - Lethargy [None]
  - Sedation [None]

NARRATIVE: CASE EVENT DATE: 20140226
